FAERS Safety Report 4854570-X (Version None)
Quarter: 2005Q4

REPORT INFORMATION
  Report Type: 
  Country: None (occurrence: None)
  Receive Date: 20051215
  Receipt Date: 20010501
  Transmission Date: 20060501
  Serious: Yes (Hospitalization)
  Sender: FDA-Public Use
  Company Number: US-ROCHE-259779

PATIENT
  Age: 44 Year
  Sex: Male
  Weight: 68.2 kg

DRUGS (13)
  1. PEG-INTERFERON ALFA 2A (RO 25-8310) [Suspect]
     Route: 058
     Dates: start: 20000818, end: 20010629
  2. PLACEBO [Suspect]
     Dosage: WITH FOOD.
     Route: 048
     Dates: start: 20000818, end: 20010629
  3. NELFINAVIR [Concomitant]
     Dosage: START DATE ALSO REPORTED AS 17 MAY 2001
     Dates: start: 19980315
  4. DIDANOSINE [Concomitant]
     Dates: start: 19981207
  5. STAVUDINE [Concomitant]
     Dates: start: 19980315
  6. PROPRANOLOL [Concomitant]
     Dates: start: 20010518
  7. FOLATE [Concomitant]
  8. ZIDOVUDINE [Concomitant]
     Dates: start: 20010517
  9. LAMIVUDINE [Concomitant]
     Dates: start: 20010517
  10. EPOETIN ALFA [Concomitant]
     Dates: start: 20010521
  11. FACTOR IX COMPLEX [Concomitant]
  12. FERROUS SULFATE TAB [Concomitant]
  13. AMITRIPTYLINE HCL [Concomitant]

REACTIONS (5)
  - ABDOMINAL PAIN [None]
  - HAEMATOCRIT DECREASED [None]
  - PERITONEAL HAEMORRHAGE [None]
  - PLATELET COUNT DECREASED [None]
  - RECTAL HAEMORRHAGE [None]
